FAERS Safety Report 6865872 (Version 2)
Quarter: 2013Q2

REPORT INFORMATION
  Report Type: Spontaneous
  Country: US (occurrence: US)
  Receive Date: 20081224
  Receipt Date: 20130528
  Transmission Date: 20140414
  Serious: Yes (Death)
  Sender: FDA-Public Use
  Company Number: US-PFIZER INC-2008154064

PATIENT
  Age: 37 Year
  Sex: Male

DRUGS (13)
  1. LITHIUM CARBONATE [Suspect]
     Dosage: UNK
     Route: 048
  2. CLONAZEPAM [Suspect]
     Dosage: UNK
     Route: 048
  3. ZOLPIDEM TARTRATE [Suspect]
     Dosage: UNK
     Route: 048
  4. BUPROPION [Suspect]
     Dosage: UNK
     Route: 048
  5. QUETIAPINE [Suspect]
     Dosage: UNK
     Route: 048
  6. BACLOFEN [Suspect]
     Dosage: UNK
     Route: 048
  7. PROMETHAZINE [Suspect]
     Dosage: UNK
     Route: 048
  8. DULOXETINE [Suspect]
     Dosage: UNK
     Route: 048
  9. LEVOTHYROXINE [Suspect]
     Dosage: UNK
     Route: 048
  10. LAMOTRIGINE [Suspect]
     Dosage: UNK
     Route: 048
  11. EFAVIRENZ [Suspect]
     Dosage: UNK
     Route: 048
  12. EMTRICITABINE/TENOFOVIR DISOPROXIL FUMARATE [Suspect]
     Dosage: UNK
     Route: 048
  13. METHADONE [Suspect]
     Dosage: UNK
     Route: 048

REACTIONS (2)
  - Completed suicide [Fatal]
  - Cardio-respiratory arrest [Fatal]
